FAERS Safety Report 9861918 (Version 2)
Quarter: 2014Q2

REPORT INFORMATION
  Report Type: Spontaneous
  Country: US (occurrence: US)
  Receive Date: 20140203
  Receipt Date: 20140411
  Transmission Date: 20141212
  Serious: Yes (Death, Life-Threatening, Hospitalization, Other)
  Sender: FDA-Public Use
  Company Number: US-009507513-1401USA014686

PATIENT
  Sex: Female
  Weight: 68.27 kg

DRUGS (1)
  1. JANUMET [Suspect]
     Dosage: UNK
     Route: 048
     Dates: start: 2009, end: 2011

REACTIONS (6)
  - Pancreatic carcinoma [Unknown]
  - Death [Fatal]
  - Cerebrovascular accident [Unknown]
  - Cholecystectomy [Unknown]
  - Gallbladder disorder [Recovered/Resolved]
  - Radiotherapy [Unknown]
